FAERS Safety Report 17928572 (Version 1)
Quarter: 2020Q2

REPORT INFORMATION
  Report Type: Spontaneous
  Country: TR (occurrence: TR)
  Receive Date: 20200623
  Receipt Date: 20200623
  Transmission Date: 20200714
  Serious: Yes (Death, Life-Threatening, Hospitalization, Other)
  Sender: FDA-Public Use
  Company Number: TR-SUN PHARMACEUTICAL INDUSTRIES LTD-2020RR-251287

PATIENT
  Age: 49 Year
  Sex: Female

DRUGS (5)
  1. MIDAZOLAM. [Suspect]
     Active Substance: MIDAZOLAM
     Indication: SEDATION
     Dosage: 2 MILLIGRAM, UNK
     Route: 030
  2. MIDAZOLAM. [Suspect]
     Active Substance: MIDAZOLAM
     Dosage: 1.5 MILLIGRAM, AT 30-MINUTE INTERVALS
     Route: 030
  3. DEXMEDETOMIDINE. [Suspect]
     Active Substance: DEXMEDETOMIDINE
     Dosage: 1.5 MICROGRAM/KILOGRAM, 1DOSE/1HOUR
     Route: 065
  4. CARBAMAZEPINE. [Suspect]
     Active Substance: CARBAMAZEPINE
     Indication: PRODUCT USED FOR UNKNOWN INDICATION
     Dosage: UNK
     Route: 048
  5. DEXMEDETOMIDINE. [Suspect]
     Active Substance: DEXMEDETOMIDINE
     Indication: SEDATION
     Dosage: 0.2 MICROGRAM/KILOGRAM, 1DOSE/1HOUR
     Route: 065

REACTIONS (5)
  - Sedation complication [Fatal]
  - Intentional overdose [Fatal]
  - Seizure [Fatal]
  - Drug ineffective [Fatal]
  - Suicide attempt [Fatal]
